FAERS Safety Report 13616671 (Version 1)
Quarter: 2017Q2

REPORT INFORMATION
  Report Type: Spontaneous
  Country: US (occurrence: US)
  Receive Date: 20170606
  Receipt Date: 20170606
  Transmission Date: 20170830
  Serious: Yes (Hospitalization)
  Sender: FDA-Public Use
  Company Number: US-SA-2016SA108651

PATIENT
  Sex: Female

DRUGS (2)
  1. GLUCAGON. [Concomitant]
     Active Substance: GLUCAGON
  2. LANTUS [Suspect]
     Active Substance: INSULIN GLARGINE
     Indication: DIABETES MELLITUS
     Dosage: DOSE:10000 UNIT(S)
     Route: 058
     Dates: start: 20160531, end: 20160531

REACTIONS (1)
  - Intentional product misuse [Unknown]

NARRATIVE: CASE EVENT DATE: 20160531
